FAERS Safety Report 4701163-0 (Version None)
Quarter: 2005Q2

REPORT INFORMATION
  Report Type: 
  Country: None (occurrence: None)
  Receive Date: 20050628
  Receipt Date: 20050624
  Transmission Date: 20051028
  Serious: Yes (Life-Threatening)
  Sender: FDA-Public Use
  Company Number: FR-GLAXOSMITHKLINE-B0385592A

PATIENT
  Age: 47 Year
  Sex: Female

DRUGS (2)
  1. AMOXICILLIN [Suspect]
     Indication: TOOTHACHE
     Dosage: 1UNIT SINGLE DOSE
     Route: 048
     Dates: start: 20050324, end: 20050324
  2. DI-ANTALVIC [Concomitant]
     Route: 065

REACTIONS (6)
  - ANAPHYLACTIC SHOCK [None]
  - BLOOD PRESSURE SYSTOLIC DECREASED [None]
  - DYSPNOEA [None]
  - FACE OEDEMA [None]
  - PRURITUS [None]
  - PRURITUS GENERALISED [None]
